FAERS Safety Report 5492779-5 (Version None)
Quarter: 2007Q4

REPORT INFORMATION
  Report Type: 
  Country: None (occurrence: None)
  Receive Date: 20071023
  Receipt Date: 20071013
  Transmission Date: 20080405
  Serious: Yes (Other)
  Sender: FDA-Public Use
  Company Number: PHFR2005GB03379

PATIENT
  Age: 49 Year
  Sex: Male
  Weight: 88 kg

DRUGS (6)
  1. CIPRALEX [Suspect]
     Route: 065
  2. CLOZARIL [Suspect]
     Indication: SCHIZOPHRENIA
     Dosage: 450 MG/DAY
     Route: 048
     Dates: start: 20050711
  3. CLOZARIL [Suspect]
     Dosage: 1700 MG OVERDOSE
     Route: 048
     Dates: start: 20051008
  4. CLOZARIL [Suspect]
     Dosage: OVERDOSE - 3 DAYS SUPPLY
     Route: 048
  5. ABILIFY [Suspect]
     Dosage: OVERDOSE - 3 DAYS SUPPLY
     Route: 065
  6. MIRTAZAPINE [Suspect]
     Dosage: OVERDOSE - 3 DAYS SUPPLY
     Route: 065

REACTIONS (3)
  - HYPERSOMNIA [None]
  - OVERDOSE [None]
  - SEDATION [None]
